FAERS Safety Report 8486358-5 (Version None)
Quarter: 2012Q3

REPORT INFORMATION
  Report Type: 
  Country: None (occurrence: None)
  Receive Date: 20120703
  Receipt Date: 20120413
  Transmission Date: 20120928
  Serious: Yes (Other)
  Sender: FDA-Public Use
  Company Number: JP-GLAXOSMITHKLINE-B0796676A

PATIENT
  Sex: Female

DRUGS (10)
  1. RELENZA [Suspect]
     Indication: INFLUENZA
     Dosage: 20MG PER DAY
     Route: 055
     Dates: start: 20120411, end: 20120413
  2. MUCODYNE [Suspect]
     Indication: NASOPHARYNGITIS
     Dosage: 3IUAX PER DAY
     Route: 048
     Dates: start: 20120411, end: 20120413
  3. ALLOID G [Concomitant]
     Route: 048
  4. ACETAMINOPHEN [Suspect]
     Indication: NASOPHARYNGITIS
     Route: 048
     Dates: start: 20120411, end: 20120413
  5. SELBEX [Suspect]
     Indication: ABDOMINAL PAIN UPPER
     Dosage: 3IUAX PER DAY
     Route: 048
     Dates: start: 20120411, end: 20120413
  6. ASTOMIN [Suspect]
     Indication: NASOPHARYNGITIS
     Dosage: 3IUAX PER DAY
     Route: 048
     Dates: start: 20120411, end: 20120413
  7. CELESTAMINE TAB [Concomitant]
     Indication: INFECTION
     Route: 048
     Dates: start: 20120412
  8. EPINASTINE HYDROCHLORIDE [Concomitant]
     Route: 048
  9. ZITHROMAX [Suspect]
     Indication: INFECTION
     Dosage: 2IUAX PER DAY
     Route: 048
     Dates: start: 20120411, end: 20120412
  10. TATHION [Concomitant]
     Indication: INFECTION
     Route: 048
     Dates: start: 20120412

REACTIONS (3)
  - ERYTHEMA [None]
  - DRUG ERUPTION [None]
  - RASH [None]
